FAERS Safety Report 9924765 (Version 2)
Quarter: 2014Q1

REPORT INFORMATION
  Report Type: Report from Study
  Country: CA (occurrence: CA)
  Receive Date: 20140226
  Receipt Date: 20140226
  Transmission Date: 20141002
  Serious: Yes (Other)
  Sender: FDA-Public Use
  Company Number: CA-JNJFOC-20140201638

PATIENT
  Age: 61 Year
  Sex: Female
  Weight: 66 kg

DRUGS (8)
  1. REMICADE [Suspect]
     Indication: RHEUMATOID ARTHRITIS
     Dosage: MENTIONED AS 2001/2002
     Route: 042
     Dates: start: 2001
  2. REMICADE [Suspect]
     Indication: RHEUMATOID ARTHRITIS
     Route: 042
     Dates: start: 2000
  3. CELEBREX [Concomitant]
     Route: 065
  4. ACTONEL [Concomitant]
     Route: 065
  5. PREDNISONE [Concomitant]
     Route: 065
  6. ENTROPHEN [Concomitant]
     Dosage: AS NEEDED.
     Route: 065
  7. SULPHASALAZINE [Concomitant]
     Route: 065
  8. TYLENOL ARTHRITIS [Concomitant]
     Indication: ARTHRITIS
     Route: 065

REACTIONS (5)
  - Fall [Recovering/Resolving]
  - Fibula fracture [Recovering/Resolving]
  - Ankle fracture [Recovering/Resolving]
  - Tibia fracture [Recovering/Resolving]
  - Wound [Not Recovered/Not Resolved]
